FAERS Safety Report 18326733 (Version 1)
Quarter: 2020Q3

REPORT INFORMATION
  Report Type: Report from Study
  Country: None (occurrence: US)
  Receive Date: 20200930
  Receipt Date: 20200930
  Transmission Date: 20201103
  Serious: Yes (Hospitalization)
  Sender: FDA-Public Use
  Company Number: US-ABBVIE-20K-163-3584141-00

PATIENT
  Age: 36 Year
  Sex: Female

DRUGS (1)
  1. HUMIRA [Suspect]
     Active Substance: ADALIMUMAB
     Indication: RHEUMATOID ARTHRITIS
     Dosage: CITRATE?FREE
     Route: 058

REACTIONS (3)
  - Wound haemorrhage [Recovering/Resolving]
  - Limb injury [Unknown]
  - Varicose vein ruptured [Recovering/Resolving]

NARRATIVE: CASE EVENT DATE: 20020922
